FAERS Safety Report 21286003 (Version 1)
Quarter: 2022Q3

REPORT INFORMATION
  Report Type: Spontaneous
  Country: US (occurrence: US)
  Receive Date: 20220902
  Receipt Date: 20220902
  Transmission Date: 20221027
  Serious: No
  Sender: FDA-Public Use
  Company Number: US-BAYER-2022A120498

PATIENT

DRUGS (2)
  1. ALEVE [Suspect]
     Active Substance: NAPROXEN SODIUM
     Indication: Pain in extremity
     Dosage: UNK
     Route: 048
  2. FISH OIL [Concomitant]
     Active Substance: FISH OIL
     Dosage: UNK

REACTIONS (2)
  - Oral discomfort [Recovering/Resolving]
  - Product colour issue [Unknown]

NARRATIVE: CASE EVENT DATE: 20220801
